FAERS Safety Report 25801714 (Version 2)
Quarter: 2025Q4

REPORT INFORMATION
  Report Type: Spontaneous
  Country: US (occurrence: US)
  Receive Date: 20250915
  Receipt Date: 20251007
  Transmission Date: 20260117
  Serious: No
  Sender: BIOGEN
  Company Number: US-BIOGEN-2025BI01323493

PATIENT
  Sex: Female

DRUGS (4)
  1. VUMERITY [Suspect]
     Active Substance: DIROXIMEL FUMARATE
     Indication: Multiple sclerosis
     Dosage: CURRENT REGIMEN?STARTING DOSE
     Route: 050
     Dates: start: 20240624
  2. VUMERITY [Suspect]
     Active Substance: DIROXIMEL FUMARATE
     Dosage: PAST REGIMEN?STARTING DOSE
     Route: 050
     Dates: start: 20211216
  3. VUMERITY [Suspect]
     Active Substance: DIROXIMEL FUMARATE
     Dosage: PAST REGIMEN?MAINTENANCE DOSE
     Route: 050
     Dates: end: 20231231
  4. VUMERITY [Suspect]
     Active Substance: DIROXIMEL FUMARATE
     Dosage: CURRENT REGIMEN?MAINTENANCE DOSE
     Route: 050

REACTIONS (1)
  - Eye disorder [Unknown]
